FAERS Safety Report 26046993 (Version 1)
Quarter: 2025Q4

REPORT INFORMATION
  Report Type: Spontaneous
  Country: JP (occurrence: JP)
  Receive Date: 20251114
  Receipt Date: 20251114
  Transmission Date: 20260118
  Serious: Yes (Other)
  Sender: ROCHE
  Company Number: JP-CHUGAI-2025035906

PATIENT
  Sex: Male

DRUGS (1)
  1. ACTEMRA [Suspect]
     Active Substance: TOCILIZUMAB
     Indication: Rheumatoid arthritis
     Dosage: 162 MILLIGRAM, ONCE/2WEEKS
     Route: 058
     Dates: start: 202412

REACTIONS (3)
  - Renal impairment [Unknown]
  - Aortic aneurysm [Unknown]
  - Sciatica [Unknown]

NARRATIVE: CASE EVENT DATE: 20250101
